FAERS Safety Report 17902978 (Version 3)
Quarter: 2020Q2

REPORT INFORMATION
  Report Type: Spontaneous
  Country: GB (occurrence: GB)
  Receive Date: 20200616
  Receipt Date: 20200624
  Transmission Date: 20200714
  Serious: Yes (Hospitalization, Other)
  Sender: FDA-Public Use
  Company Number: GB-PFIZER INC-2020230675

PATIENT
  Age: 13 Year
  Sex: Female

DRUGS (2)
  1. TRANEXAMIC ACID. [Suspect]
     Active Substance: TRANEXAMIC ACID
     Dosage: INTRAOPERATIVE INFUSION OF 10 MG/KG/HOUR
     Route: 040
  2. TRANEXAMIC ACID. [Suspect]
     Active Substance: TRANEXAMIC ACID
     Indication: CRANIOSYNOSTOSIS
     Dosage: INFUSED AT A RATE OF10 MG/KG/HOUR FOR THE REMAINDER OF THE PROCEDURE, INFUSION ON INDUCTION
     Route: 040

REACTIONS (3)
  - Off label use [Unknown]
  - Product use in unapproved indication [Unknown]
  - Retinal artery occlusion [Not Recovered/Not Resolved]
